FAERS Safety Report 16317270 (Version 4)
Quarter: 2019Q3

REPORT INFORMATION
  Report Type: Spontaneous
  Country: US (occurrence: US)
  Receive Date: 20190515
  Receipt Date: 20190913
  Transmission Date: 20191004
  Serious: Yes (Hospitalization)
  Sender: FDA-Public Use
  Company Number: US-BIOGEN-2019BI00737697

PATIENT
  Sex: Female

DRUGS (1)
  1. PLEGRIDY [Suspect]
     Active Substance: PEGINTERFERON BETA-1A
     Indication: MULTIPLE SCLEROSIS
     Route: 058
     Dates: start: 201503, end: 201904

REACTIONS (5)
  - Asthenia [Unknown]
  - Alopecia [Unknown]
  - Urosepsis [Not Recovered/Not Resolved]
  - Muscle spasms [Unknown]
  - Diarrhoea [Unknown]
